FAERS Safety Report 11628058 (Version 1)
Quarter: 2015Q4

REPORT INFORMATION
  Report Type: Spontaneous
  Country: US (occurrence: None)
  Receive Date: 20151013
  Receipt Date: 20151013
  Transmission Date: 20160304
  Serious: Yes (Life-Threatening, Hospitalization)
  Sender: FDA-Public Use
  Company Number: None

PATIENT
  Age: 63 Year
  Sex: Male
  Weight: 92.9 kg

DRUGS (1)
  1. AMPHETAMINE/DEXTROAMPHETAMINE [Suspect]
     Active Substance: AMPHETAMINE\DEXTROAMPHETAMINE
     Indication: ATTENTION DEFICIT/HYPERACTIVITY DISORDER
     Route: 048
     Dates: start: 20130815, end: 20150810

REACTIONS (7)
  - Gastrooesophageal reflux disease [None]
  - Cardiac failure congestive [None]
  - Hypomagnesaemia [None]
  - No therapeutic response [None]
  - Left ventricular dysfunction [None]
  - Ventricular extrasystoles [None]
  - Atrial fibrillation [None]

NARRATIVE: CASE EVENT DATE: 20150710
